FAERS Safety Report 7214369-6 (Version None)
Quarter: 2011Q1

REPORT INFORMATION
  Report Type: 
  Country: None (occurrence: None)
  Receive Date: 20110107
  Receipt Date: 20101228
  Transmission Date: 20110831
  Serious: Yes (Hospitalization)
  Sender: FDA-Public Use
  Company Number: PHHY2010FR89102

PATIENT
  Sex: Male

DRUGS (10)
  1. TEGRETOL [Interacting]
     Dosage: 200 MG, QW
     Dates: start: 20100601, end: 20100621
  2. CLONAZEPAM [Concomitant]
     Dosage: 10 DRP, QD
     Route: 048
  3. TEGRETOL [Suspect]
     Dosage: 600 MG, QD
     Dates: start: 20100501
  4. DEROXAT [Concomitant]
     Dosage: 20 MG, UNK
  5. LEVOTHYROX [Concomitant]
     Dosage: UNK
  6. PREVISCAN [Interacting]
     Dosage: 20 MG ON EVEN DATES AND 15 MG ON ODD DATES FOR SEVERAL YEARS
  7. LOVENOX [Concomitant]
     Dosage: UNK
  8. PREVISCAN [Interacting]
     Dosage: 20 MG ON EVEN DATES AND 15 MG ON ODD DATES FOR SEVERAL YEARS
  9. DIAMICRON [Concomitant]
     Dosage: 30 MG, UNK
  10. PRAVASTATIN [Concomitant]
     Dosage: UNK

REACTIONS (4)
  - DRUG INTERACTION [None]
  - FALL [None]
  - HAEMATOMA [None]
  - INTERNATIONAL NORMALISED RATIO DECREASED [None]
